FAERS Safety Report 8542039-0 (Version None)
Quarter: 2012Q3

REPORT INFORMATION
  Report Type: 
  Country: None (occurrence: None)
  Receive Date: 20120726
  Receipt Date: 20110926
  Transmission Date: 20120928
  Serious: No
  Sender: FDA-Public Use
  Company Number: US-ASTRAZENECA-2011SE57746

PATIENT
  Age: 58 Year
  Sex: Male
  Weight: 95.3 kg

DRUGS (14)
  1. SEROQUEL [Suspect]
     Dosage: EVERY OTHER NIGHT
     Route: 048
  2. ALBUTEROL [Concomitant]
  3. POTASSIUM CHLORIDE [Concomitant]
  4. NITROGLYCERIN [Concomitant]
  5. NITROSTAT [Concomitant]
  6. SPIRIVA [Concomitant]
  7. LASIX [Concomitant]
  8. SEROQUEL [Suspect]
     Indication: BIPOLAR DISORDER
     Route: 048
     Dates: start: 20110201, end: 20110925
  9. SYMBICORT [Concomitant]
     Indication: MULTIPLE ALLERGIES
  10. RISPERIDONE [Suspect]
     Route: 065
  11. AMLODIPINE [Concomitant]
     Indication: BLOOD PRESSURE ABNORMAL
  12. HYDROCENE [Concomitant]
  13. ZYLOPAM [Concomitant]
     Indication: ANXIETY
  14. DEPAKOTE [Concomitant]
     Indication: BIPOLAR DISORDER

REACTIONS (5)
  - INSOMNIA [None]
  - MIDDLE INSOMNIA [None]
  - TACHYPHRENIA [None]
  - INAPPROPRIATE SCHEDULE OF DRUG ADMINISTRATION [None]
  - DRUG DOSE OMISSION [None]
